FAERS Safety Report 15348258 (Version 3)
Quarter: 2019Q2

REPORT INFORMATION
  Report Type: Spontaneous
  Country: JP (occurrence: JP)
  Receive Date: 20180904
  Receipt Date: 20190613
  Transmission Date: 20190711
  Serious: Yes (Death, Life-Threatening, Disabling, Other)
  Sender: FDA-Public Use
  Company Number: JP-GLAXOSMITHKLINE-JP2018JPN158275

PATIENT
  Age: 72 Year
  Sex: Male
  Weight: 69 kg

DRUGS (14)
  1. NOVOLIN R [Concomitant]
     Active Substance: INSULIN HUMAN
     Dosage: UNK
  2. BISONO TAPE [Concomitant]
     Dosage: UNK
  3. GLUCOSE [Concomitant]
     Active Substance: DEXTROSE
     Dosage: UNK
  4. PRECEDEX [Concomitant]
     Active Substance: DEXMEDETOMIDINE HYDROCHLORIDE
     Indication: SEDATION
     Dosage: 16 MCG/HR
     Dates: start: 20180823, end: 20180828
  5. NORADRENALINE [Concomitant]
     Active Substance: NOREPINEPHRINE
     Indication: HYPOTENSION
     Dosage: UNK, AS NEEDED
     Dates: start: 20180817, end: 20180828
  6. THYRADIN S [Concomitant]
     Active Substance: LEVOTHYROXINE SODIUM
     Dosage: UNK
  7. NEO-SYNESIN [Concomitant]
     Active Substance: PHENYLEPHRINE HYDROCHLORIDE
     Indication: HYPOTENSION
     Dosage: UNK, AS NEEDED
     Dates: start: 20180825, end: 20180828
  8. SAMSCA [Concomitant]
     Active Substance: TOLVAPTAN
     Dosage: UNK
  9. LACTEC [Concomitant]
     Active Substance: CALCIUM CHLORIDE ANHYDROUS\POTASSIUM CHLORIDE\SODIUM CHLORIDE\SODIUM LACTATE
     Dosage: UNK
  10. VITAMEDIN [Concomitant]
     Active Substance: CYANOCOBALAMIN\PYRIDOXINE HYDROCHLORIDE\THIAMINE
     Dosage: UNK
  11. FENTANYL. [Concomitant]
     Active Substance: FENTANYL
     Indication: SEDATION
     Dosage: 9 ?G, 1D
     Dates: start: 20180823, end: 20180828
  12. FUROSEMIDE. [Concomitant]
     Active Substance: FUROSEMIDE
     Dosage: 20-40MG/DAY
     Dates: start: 20180728, end: 20180826
  13. FLOLAN [Suspect]
     Active Substance: EPOPROSTENOL SODIUM
     Indication: PULMONARY HYPERTENSION
     Dosage: UNK
     Route: 042
     Dates: start: 20180824, end: 20180824
  14. MILRINONE [Concomitant]
     Active Substance: MILRINONE
     Dosage: UNK

REACTIONS (3)
  - Hypotension [Recovered/Resolved]
  - Infection [Unknown]
  - Septic shock [Fatal]

NARRATIVE: CASE EVENT DATE: 20180824
